FAERS Safety Report 25496799 (Version 3)
Quarter: 2025Q3

REPORT INFORMATION
  Report Type: Report from Study
  Country: US (occurrence: US)
  Receive Date: 20250701
  Receipt Date: 20250731
  Transmission Date: 20251021
  Serious: Yes (Hospitalization)
  Sender: MALLINCKRODT
  Company Number: US-MALLINCKRODT-MNK202503983

PATIENT
  Age: 67 Year
  Sex: Male

DRUGS (2)
  1. CORTICOTROPIN [Suspect]
     Active Substance: CORTICOTROPIN
     Indication: Proteinuria
     Dates: start: 20250616, end: 202506
  2. CORTICOTROPIN [Suspect]
     Active Substance: CORTICOTROPIN
     Route: 058
     Dates: start: 202506, end: 20250703

REACTIONS (5)
  - Pancreas transplant rejection [Unknown]
  - Memory impairment [Unknown]
  - Gait disturbance [Unknown]
  - Blood glucose increased [Unknown]
  - Swelling [Unknown]

NARRATIVE: CASE EVENT DATE: 20250101
